FAERS Safety Report 8445076-X (Version None)
Quarter: 2012Q2

REPORT INFORMATION
  Report Type: 
  Country: None (occurrence: None)
  Receive Date: 20120618
  Receipt Date: 20120612
  Transmission Date: 20120825
  Serious: Yes (Hospitalization)
  Sender: FDA-Public Use
  Company Number: US-ACTELION-A-NJ2012-67136

PATIENT

DRUGS (4)
  1. LOVENOX [Concomitant]
  2. SPIRONOLACTONE [Interacting]
  3. VENTAVIS [Suspect]
     Indication: PULMONARY ARTERIAL HYPERTENSION
     Dosage: UNK
     Route: 055
     Dates: start: 20111007
  4. TRACLEER [Interacting]
     Indication: PULMONARY ARTERIAL HYPERTENSION
     Dosage: UNK
     Route: 048
     Dates: start: 20110822

REACTIONS (3)
  - BILE DUCT STONE [None]
  - DRUG INTERACTION [None]
  - RENAL FAILURE [None]
